FAERS Safety Report 13255369 (Version 2)
Quarter: 2017Q4

REPORT INFORMATION
  Report Type: Spontaneous
  Country: US (occurrence: US)
  Receive Date: 20170221
  Receipt Date: 20171006
  Transmission Date: 20180320
  Serious: No
  Sender: FDA-Public Use
  Company Number: US-JNJFOC-20170218867

PATIENT
  Sex: Male

DRUGS (1)
  1. INVEGA SUSTENNA [Suspect]
     Active Substance: PALIPERIDONE PALMITATE
     Indication: SCHIZOPHRENIA
     Route: 030
     Dates: start: 201602

REACTIONS (3)
  - Rash generalised [Recovering/Resolving]
  - Weight increased [Not Recovered/Not Resolved]
  - Nipple enlargement [Unknown]

NARRATIVE: CASE EVENT DATE: 2016
